FAERS Safety Report 6209679-5 (Version None)
Quarter: 2009Q2

REPORT INFORMATION
  Report Type: 
  Country: None (occurrence: None)
  Receive Date: 20090601
  Receipt Date: 20090528
  Transmission Date: 20091009
  Serious: Yes (Hospitalization)
  Sender: FDA-Public Use
  Company Number: JP-ASTRAZENECA-2009AP03337

PATIENT
  Sex: Female

DRUGS (3)
  1. OMEPRAL [Suspect]
     Indication: REFLUX OESOPHAGITIS
     Route: 048
     Dates: start: 20090501, end: 20090501
  2. TAKEPRON [Suspect]
     Dosage: DOSE UNKNOWN
     Route: 048
     Dates: start: 20090501
  3. GASTER [Concomitant]

REACTIONS (1)
  - HEPATIC FUNCTION ABNORMAL [None]
